FAERS Safety Report 9695670 (Version 1)
Quarter: 2013Q4

REPORT INFORMATION
  Report Type: Spontaneous
  Country: US (occurrence: US)
  Receive Date: 20131119
  Receipt Date: 20131119
  Transmission Date: 20140711
  Serious: No
  Sender: FDA-Public Use
  Company Number: US-009507513-1310USA007720

PATIENT
  Sex: Male
  Weight: 81.63 kg

DRUGS (3)
  1. VICTRELIS [Suspect]
     Indication: PRODUCT USED FOR UNKNOWN INDICATION
     Dosage: 400 MG, Q8H
     Route: 048
  2. REBETOL [Suspect]
     Indication: PRODUCT USED FOR UNKNOWN INDICATION
     Dosage: 200 MG, UNK
     Route: 048
  3. PEGASYS [Suspect]
     Indication: PRODUCT USED FOR UNKNOWN INDICATION
     Dosage: 180 MICROGRAM PER SQ METER, UNK

REACTIONS (8)
  - Ingrown hair [Unknown]
  - Rash [Unknown]
  - Alopecia [Unknown]
  - Anaemia [Unknown]
  - Neutropenia [Unknown]
  - Pollakiuria [Unknown]
  - Urinary hesitation [Unknown]
  - Urine abnormality [Unknown]
